FAERS Safety Report 13754285 (Version 1)
Quarter: 2017Q3

REPORT INFORMATION
  Report Type: Spontaneous
  Country: US (occurrence: US)
  Receive Date: 20170714
  Receipt Date: 20170714
  Transmission Date: 20171127
  Serious: Yes (Life-Threatening, Hospitalization, Disabling)
  Sender: FDA-Public Use
  Company Number: None

PATIENT
  Age: 82 Year
  Sex: Male
  Weight: 77.11 kg

DRUGS (1)
  1. HEPARIN 500 [Suspect]
     Active Substance: HEPARIN SODIUM
     Indication: DRUG THERAPY
     Route: 042
     Dates: start: 20170428

REACTIONS (3)
  - Dyspnoea [None]
  - Throat tightness [None]
  - Loss of consciousness [None]

NARRATIVE: CASE EVENT DATE: 20170428
